FAERS Safety Report 7115432-0 (Version None)
Quarter: 2010Q4

REPORT INFORMATION
  Report Type: 
  Country: None (occurrence: None)
  Receive Date: 20101122
  Receipt Date: 20101110
  Transmission Date: 20110411
  Serious: Yes (Other)
  Sender: FDA-Public Use
  Company Number: PHFR2010GB01632

PATIENT
  Sex: Male

DRUGS (4)
  1. CLOZARIL [Suspect]
     Indication: SCHIZOPHRENIA
     Dosage: 450 MG, QD
     Route: 048
     Dates: start: 20000810
  2. CLOZARIL [Suspect]
     Dosage: 300MG/DAY
     Route: 048
     Dates: end: 20100924
  3. QUETIAPINE [Concomitant]
  4. INTERFERON [Concomitant]
     Indication: HEPATITIS C
     Dosage: UNK

REACTIONS (6)
  - DIABETES MELLITUS [None]
  - HAEMOGLOBIN DECREASED [None]
  - NEUTROPENIA [None]
  - OROPHARYNGEAL PAIN [None]
  - PLATELET COUNT DECREASED [None]
  - WHITE BLOOD CELL COUNT DECREASED [None]
